FAERS Safety Report 23709110 (Version 3)
Quarter: 2024Q4

REPORT INFORMATION
  Report Type: Spontaneous
  Country: CA (occurrence: CA)
  Receive Date: 20240404
  Receipt Date: 20241017
  Transmission Date: 20250114
  Serious: Yes (Hospitalization, Other)
  Sender: PFIZER
  Company Number: CA-PFIZER INC-202400077900

PATIENT
  Age: 79 Year
  Sex: Female

DRUGS (4)
  1. ABRILADA [Suspect]
     Active Substance: ADALIMUMAB-AFZB
     Indication: Crohn^s disease
     Dosage: 40 MG, WEEKLY (EVERY 7 DAYS)
     Route: 058
     Dates: start: 20220510
  2. ABRILADA [Suspect]
     Active Substance: ADALIMUMAB-AFZB
     Dosage: 40 MG, WEEKLY (EVERY 7 DAYS)
     Route: 058
     Dates: start: 20240327
  3. ABRILADA [Suspect]
     Active Substance: ADALIMUMAB-AFZB
     Dosage: 40 MG, WEEKLY, EVERY 7 DAYS
     Route: 058
     Dates: start: 20241008
  4. ABRILADA [Suspect]
     Active Substance: ADALIMUMAB-AFZB
     Dosage: 40 MG, 1 WEEK (40 MG, EVERY 7 DAYS)
     Route: 058
     Dates: start: 20241014

REACTIONS (5)
  - Lipoma of breast [Not Recovered/Not Resolved]
  - Breast cyst [Not Recovered/Not Resolved]
  - Off label use [Unknown]
  - Therapy interrupted [Unknown]
  - Body temperature decreased [Unknown]

NARRATIVE: CASE EVENT DATE: 20240327
